FAERS Safety Report 7879146-1 (Version None)
Quarter: 2011Q4

REPORT INFORMATION
  Report Type: 
  Country: None (occurrence: None)
  Receive Date: 20111101
  Receipt Date: 20111021
  Transmission Date: 20120403
  Serious: Yes (Other)
  Sender: FDA-Public Use
  Company Number: US-BAYER-201040361NA

PATIENT
  Age: 17 Year
  Sex: Female
  Weight: 100 kg

DRUGS (7)
  1. YAZ [Suspect]
     Indication: ORAL CONTRACEPTION
  2. FLEXERIL [Concomitant]
     Indication: BACK PAIN
  3. YAZ [Suspect]
     Indication: PREMENSTRUAL SYNDROME
     Dosage: UNK UNK, UNK
     Route: 048
     Dates: start: 20010101, end: 20040201
  4. MYLANTA [ALUMINIUM HYDROXIDE,MAGNESIUM HYDROXIDE,SIMETICONE] [Concomitant]
     Dosage: UNK UNK, QID
     Route: 048
     Dates: start: 20030401
  5. TAGAMET [Concomitant]
     Dosage: 300 MG, UNK
     Route: 048
     Dates: start: 20030401
  6. NSAID'S [Concomitant]
  7. ORTHO EVRA [Concomitant]
     Dosage: UNK
     Dates: start: 20030401

REACTIONS (3)
  - CHOLECYSTECTOMY [None]
  - BILIARY DYSKINESIA [None]
  - CHOLECYSTITIS CHRONIC [None]
